FAERS Safety Report 5110063-6 (Version None)
Quarter: 2006Q3

REPORT INFORMATION
  Report Type: 
  Country: None (occurrence: None)
  Receive Date: 20060918
  Receipt Date: 20060904
  Transmission Date: 20061208
  Serious: Yes (Other)
  Sender: FDA-Public Use
  Company Number: ENTC2006-0268

PATIENT
  Sex: Male

DRUGS (1)
  1. STALEVO 100 [Suspect]
     Dosage: SEE IMAGE
     Dates: start: 20050101

REACTIONS (7)
  - ABNORMAL BEHAVIOUR [None]
  - AGITATION [None]
  - AKINESIA [None]
  - CHEST PAIN [None]
  - CONSTIPATION [None]
  - PANIC ATTACK [None]
  - SWELLING [None]
